FAERS Safety Report 10020343 (Version 1)
Quarter: 2014Q1

REPORT INFORMATION
  Report Type: Spontaneous
  Country: US (occurrence: US)
  Receive Date: 20140319
  Receipt Date: 20140319
  Transmission Date: 20141002
  Serious: No
  Sender: FDA-Public Use
  Company Number: US-BIOGENIDEC-2014BI022234

PATIENT
  Age: 51 Year
  Sex: Female

DRUGS (10)
  1. TECFIDERA [Suspect]
     Indication: MULTIPLE SCLEROSIS
     Route: 048
  2. METFORMIN [Concomitant]
  3. LISINOPRIL [Concomitant]
  4. PREMARIN VAGINAL CREAM [Concomitant]
  5. CALCIUM + VITAMIN D [Concomitant]
  6. VITAMIN D [Concomitant]
  7. FISH OIL [Concomitant]
  8. GLUCOSAMINE + VITAMIN D [Concomitant]
  9. IBUPROFEN [Concomitant]
  10. ALEVE [Concomitant]

REACTIONS (2)
  - Urine odour abnormal [Unknown]
  - Hot flush [Unknown]
